FAERS Safety Report 7169788-3 (Version None)
Quarter: 2010Q4

REPORT INFORMATION
  Report Type: 
  Country: None (occurrence: None)
  Receive Date: 20101217
  Receipt Date: 20100817
  Transmission Date: 20110411
  Serious: No
  Sender: FDA-Public Use
  Company Number: A0876368A

PATIENT
  Age: 75 Year
  Sex: Female

DRUGS (1)
  1. SORIATANE [Suspect]
     Indication: SKIN CANCER
     Route: 048

REACTIONS (2)
  - ALOPECIA [None]
  - DRUG INEFFECTIVE [None]
